FAERS Safety Report 18293001 (Version 1)
Quarter: 2020Q3

REPORT INFORMATION
  Report Type: Spontaneous
  Country: JP (occurrence: JP)
  Receive Date: 20200921
  Receipt Date: 20200921
  Transmission Date: 20201103
  Serious: Yes (Life-Threatening, Hospitalization, Other)
  Sender: FDA-Public Use
  Company Number: JP-EXELIXIS-CABO-20030863

PATIENT
  Age: 70 Year
  Sex: Female
  Weight: 39.7 kg

DRUGS (8)
  1. FENTOS [Suspect]
     Active Substance: FENTANYL
     Indication: CANCER PAIN
     Dosage: 2.5 MILLIGRAM, QD
     Route: 062
     Dates: start: 20161122, end: 20200721
  2. NEXIUM [Concomitant]
     Active Substance: ESOMEPRAZOLE MAGNESIUM
     Indication: PROPHYLAXIS AGAINST GASTROINTESTINAL ULCER
     Dosage: UNK
  3. CABOMETYX [Suspect]
     Active Substance: CABOZANTINIB S-MALATE
     Indication: METASTATIC RENAL CELL CARCINOMA
     Dosage: 20 MILLIGRAM, QD
     Route: 048
     Dates: start: 20200617, end: 20200731
  4. FENTOS [Suspect]
     Active Substance: FENTANYL
     Dosage: 3 MILLIGRAM, QD
     Route: 062
     Dates: start: 20200722, end: 20200728
  5. THYRADIN S [Concomitant]
     Active Substance: LEVOTHYROXINE SODIUM
     Indication: HYPOTHYROIDISM
     Dosage: 50 MICROGRAM, QD
     Route: 048
     Dates: start: 20170402
  6. THYRADIN S [Concomitant]
     Active Substance: LEVOTHYROXINE SODIUM
     Indication: HYPOTHYROIDISM
     Dosage: UNK
  7. MIROGABALIN BESILATE [Concomitant]
     Indication: NEURALGIA
     Dosage: UNK
  8. FENTOS [Suspect]
     Active Substance: FENTANYL
     Dosage: 2 MILLIGRAM, QD
     Route: 062
     Dates: start: 20200729

REACTIONS (9)
  - Neck pain [Not Recovered/Not Resolved]
  - Somnolence [Recovered/Resolved]
  - Vomiting [Recovered/Resolved]
  - Disease progression [Unknown]
  - Hyponatraemia [Recovered/Resolved]
  - Metastases to spine [Unknown]
  - Malaise [Unknown]
  - Hypoaesthesia [Unknown]
  - Nausea [Recovered/Resolved]

NARRATIVE: CASE EVENT DATE: 20200318
